FAERS Safety Report 6848313-8 (Version None)
Quarter: 2010Q3

REPORT INFORMATION
  Report Type: 
  Country: None (occurrence: None)
  Receive Date: 20100716
  Receipt Date: 20100709
  Transmission Date: 20110219
  Serious: Yes (Death)
  Sender: FDA-Public Use
  Company Number: JP-ROCHE-711276

PATIENT
  Sex: Female
  Weight: 34 kg

DRUGS (12)
  1. ACTEMRA [Suspect]
     Indication: RHEUMATOID ARTHRITIS
     Route: 041
     Dates: start: 20100507, end: 20100507
  2. PREDNISOLONE [Concomitant]
     Dosage: FORM:PERORAL AGENT
     Route: 048
     Dates: end: 20100527
  3. PREDNISOLONE [Concomitant]
     Route: 048
     Dates: start: 20100528, end: 20100101
  4. MAGMITT [Concomitant]
     Route: 048
     Dates: end: 20100101
  5. SELBEX [Concomitant]
     Dosage: FORM:PERORAL AGENT
     Route: 048
     Dates: end: 20100101
  6. LOXONIN [Concomitant]
     Dosage: FORM:UNCERTAINTY
     Route: 065
     Dates: end: 20100101
  7. MUCOSOLVAN [Concomitant]
     Route: 048
     Dates: end: 20100101
  8. OPALMON [Concomitant]
     Route: 048
     Dates: end: 20100101
  9. LIPITOR [Concomitant]
     Route: 048
     Dates: end: 20100101
  10. LASIX [Concomitant]
     Dosage: FORM:UNCERTAINTY
     Route: 065
     Dates: end: 20100101
  11. OMEPRAL [Concomitant]
     Dosage: FORM:UNCERTAINTY
     Route: 065
     Dates: end: 20100101
  12. BONALON [Concomitant]
     Dosage: REPORTED AS BONALON 35MG
     Route: 048
     Dates: end: 20100101

REACTIONS (2)
  - CARDIAC FAILURE ACUTE [None]
  - HERPES ZOSTER [None]
